FAERS Safety Report 7519221-4 (Version None)
Quarter: 2011Q2

REPORT INFORMATION
  Report Type: 
  Country: None (occurrence: None)
  Receive Date: 20110523
  Receipt Date: 20110518
  Transmission Date: 20111010
  Serious: Yes (Hospitalization)
  Sender: FDA-Public Use
  Company Number: 2010SP044846

PATIENT
  Age: 63 Year
  Sex: Female

DRUGS (1)
  1. MIRTAZAPINE [Suspect]
     Indication: DEPRESSION
     Dosage: 15 MG;QD;PO ; 30 MG
     Route: 048

REACTIONS (5)
  - STATUS EPILEPTICUS [None]
  - RESTLESSNESS [None]
  - INCOHERENT [None]
  - ABNORMAL BEHAVIOUR [None]
  - TONIC CONVULSION [None]
